FAERS Safety Report 23938046 (Version 2)
Quarter: 2024Q3

REPORT INFORMATION
  Report Type: Spontaneous
  Country: US (occurrence: None)
  Receive Date: 20240604
  Receipt Date: 20240705
  Transmission Date: 20241017
  Serious: No
  Sender: ASTRAZENECA
  Company Number: 2024A128549

PATIENT
  Sex: Female

DRUGS (1)
  1. TEZSPIRE [Suspect]
     Active Substance: TEZEPELUMAB-EKKO

REACTIONS (10)
  - Lacrimation increased [Unknown]
  - Eye irritation [Unknown]
  - Dysphonia [Unknown]
  - Headache [Unknown]
  - Vertigo [Unknown]
  - Blood sodium decreased [Unknown]
  - Blood chloride decreased [Unknown]
  - White blood cell count increased [Unknown]
  - Eye pain [Unknown]
  - Dizziness [Unknown]
